FAERS Safety Report 6840871-2 (Version None)
Quarter: 2010Q3

REPORT INFORMATION
  Report Type: 
  Country: None (occurrence: None)
  Receive Date: 20100714
  Receipt Date: 20070620
  Transmission Date: 20110219
  Serious: No
  Sender: FDA-Public Use
  Company Number: US-PFIZER INC-2007052288

PATIENT
  Sex: Female
  Weight: 72.7 kg

DRUGS (6)
  1. CHANTIX [Suspect]
     Indication: SMOKING CESSATION THERAPY
     Dates: start: 20070604
  2. ZITHROMAX (CAPS) [Suspect]
     Dates: start: 20070604, end: 20070601
  3. WELLBUTRIN [Concomitant]
  4. LAMICTAL [Concomitant]
  5. CRANBERRY [Concomitant]
  6. MULTI-VITAMINS [Concomitant]

REACTIONS (2)
  - NAUSEA [None]
  - SKIN DISCOLOURATION [None]
